FAERS Safety Report 6763839-3 (Version None)
Quarter: 2010Q2

REPORT INFORMATION
  Report Type: 
  Country: None (occurrence: None)
  Receive Date: 20100610
  Receipt Date: 20100601
  Transmission Date: 20101027
  Serious: Yes (Death, Life-Threatening)
  Sender: FDA-Public Use
  Company Number: CN-PFIZER INC-2010069438

PATIENT
  Age: 64 Year
  Sex: Female

DRUGS (6)
  1. ATORVASTATIN CALCIUM [Suspect]
     Indication: LIPIDS INCREASED
     Dosage: UNK
     Route: 048
     Dates: start: 20100503, end: 20100505
  2. CORDARONE [Suspect]
     Indication: ATRIAL FIBRILLATION
     Dosage: 1200 MG, UNK
     Route: 042
     Dates: start: 20100503, end: 20100505
  3. CORDARONE [Suspect]
     Dosage: UNK
     Route: 042
     Dates: start: 20100509, end: 20100509
  4. DIGOXIN [Suspect]
     Indication: CARDIAC FAILURE
     Dosage: UNK
     Route: 048
     Dates: start: 20100503, end: 20100505
  5. RAMIPRIL [Suspect]
     Indication: HYPERTENSION
     Dosage: UNK, DAILY
     Route: 048
     Dates: start: 20100503, end: 20100505
  6. SPIRONOLACTONE [Suspect]
     Indication: DIURETIC THERAPY
     Dosage: UNK
     Route: 048
     Dates: start: 20100503, end: 20100505

REACTIONS (3)
  - HEPATIC FUNCTION ABNORMAL [None]
  - MULTI-ORGAN FAILURE [None]
  - VENTRICULAR FIBRILLATION [None]
